FAERS Safety Report 6448570-6 (Version None)
Quarter: 2009Q4

REPORT INFORMATION
  Report Type: 
  Country: None (occurrence: None)
  Receive Date: 20091120
  Receipt Date: 20091109
  Transmission Date: 20100525
  Serious: Yes (Other)
  Sender: FDA-Public Use
  Company Number: BE-BAYER-200713335GDS

PATIENT
  Age: 42 Year
  Sex: Female
  Weight: 82 kg

DRUGS (2)
  1. AVELOX [Suspect]
     Indication: TRACHEITIS
     Dosage: TOTAL DAILY DOSE: 400 MG  UNIT DOSE: 400 MG
     Route: 048
     Dates: start: 20070213, end: 20070217
  2. FLEMOXIN [Concomitant]
     Indication: TRACHEITIS
     Route: 065
     Dates: start: 20070201, end: 20070201

REACTIONS (8)
  - EYE PAIN [None]
  - IRIDOCYCLITIS [None]
  - IRIS HYPOPIGMENTATION [None]
  - IRIS TRANSILLUMINATION DEFECT [None]
  - MYDRIASIS [None]
  - PHOTOPHOBIA [None]
  - UVEITIS [None]
  - VISUAL ACUITY REDUCED [None]
